FAERS Safety Report 5355924-8 (Version None)
Quarter: 2007Q2

REPORT INFORMATION
  Report Type: 
  Country: None (occurrence: None)
  Receive Date: 20070530
  Receipt Date: 20061213
  Transmission Date: 20071010
  Serious: Yes (Hospitalization, Other)
  Sender: FDA-Public Use
  Company Number: US200609007343

PATIENT
  Age: 51 Year
  Sex: Female
  Weight: 133.3 kg

DRUGS (2)
  1. ZYPREXA [Suspect]
     Dates: start: 19990101, end: 20040101
  2. BUPROPION HCL [Concomitant]

REACTIONS (3)
  - DIABETES MELLITUS [None]
  - KETOSIS [None]
  - METABOLIC DISORDER [None]
